FAERS Safety Report 5430424-5 (Version None)
Quarter: 2007Q3

REPORT INFORMATION
  Report Type: 
  Country: None (occurrence: None)
  Receive Date: 20070828
  Receipt Date: 20070813
  Transmission Date: 20080115
  Serious: Yes (Other)
  Sender: FDA-Public Use
  Company Number: 2007RR-09321

PATIENT
  Age: 31 Year
  Sex: Female

DRUGS (3)
  1. CLARITHROMYCIN [Suspect]
     Dosage: 500 MG, ORAL
     Route: 048
  2. CEFOTAXIME SODIUM [Suspect]
     Dosage: 2 G
  3. FLUOXETINE [Suspect]
     Dosage: 20 MG

REACTIONS (2)
  - AGRANULOCYTOSIS [None]
  - LEUKOPENIA [None]
